FAERS Safety Report 6377952-6 (Version None)
Quarter: 2009Q3

REPORT INFORMATION
  Report Type: 
  Country: None (occurrence: None)
  Receive Date: 20090925
  Receipt Date: 20090918
  Transmission Date: 20100115
  Serious: Yes (Disabling, Other)
  Sender: FDA-Public Use
  Company Number: PHHO2008GB09886

PATIENT
  Sex: Female
  Weight: 87.5 kg

DRUGS (8)
  1. ZOLEDRONIC ACID [Suspect]
     Indication: METASTASES TO BONE
     Dosage: 4MG
     Route: 042
     Dates: start: 20040707, end: 20060906
  2. CALCIUM [Concomitant]
  3. VITAMIN D [Concomitant]
  4. SIMVASTATIN [Concomitant]
     Indication: BLOOD CHOLESTEROL
  5. ATENOLOL [Concomitant]
     Indication: HYPERTENSION
  6. NIFEDIPINE [Concomitant]
     Indication: HYPERTENSION
  7. RAMIPRIL [Concomitant]
     Indication: HYPERTENSION
  8. ARIMIDEX [Concomitant]
     Indication: BREAST CANCER

REACTIONS (10)
  - DEBRIDEMENT [None]
  - INFECTION [None]
  - MUCOSAL MEMBRANE HYPERPLASIA [None]
  - ORAL PUSTULE [None]
  - OSTEOLYSIS [None]
  - OSTEONECROSIS [None]
  - SINUSITIS [None]
  - STOMATITIS [None]
  - SWELLING [None]
  - TOOTH EXTRACTION [None]
